FAERS Safety Report 23239433 (Version 1)
Quarter: 2023Q4

REPORT INFORMATION
  Report Type: Spontaneous
  Country: SK (occurrence: SK)
  Receive Date: 20231129
  Receipt Date: 20231129
  Transmission Date: 20240109
  Serious: Yes (Other)
  Sender: FDA-Public Use
  Company Number: SK-GLAXOSMITHKLINE-SK2023GSK165771

PATIENT

DRUGS (1)
  1. LAMOTRIGINE [Suspect]
     Active Substance: LAMOTRIGINE
     Indication: Product used for unknown indication
     Dosage: UNK

REACTIONS (6)
  - Drug reaction with eosinophilia and systemic symptoms [Unknown]
  - Drug eruption [Unknown]
  - Pyrexia [Unknown]
  - Rash morbilliform [Unknown]
  - Blood disorder [Unknown]
  - Liver disorder [Unknown]
